FAERS Safety Report 16202495 (Version 1)
Quarter: 2019Q2

REPORT INFORMATION
  Report Type: Spontaneous
  Country: US (occurrence: US)
  Receive Date: 20190416
  Receipt Date: 20190416
  Transmission Date: 20190711
  Serious: No
  Sender: FDA-Public Use
  Company Number: US-DRREDDYS-USA/USA/19/0109360

PATIENT
  Age: 16 Year
  Sex: Male

DRUGS (1)
  1. SERNIVO [Suspect]
     Active Substance: BETAMETHASONE DIPROPIONATE
     Indication: PRODUCT USED FOR UNKNOWN INDICATION
     Dosage: SERNIVO SPRAY 0.05%120 ML, TWICE A DAY ON HIS ARMS AND ON HIS ARMS AND ON HIS BACK
     Route: 061

REACTIONS (1)
  - Off label use [Unknown]
